FAERS Safety Report 4948002-0 (Version None)
Quarter: 2006Q1

REPORT INFORMATION
  Report Type: 
  Country: None (occurrence: None)
  Receive Date: 20060320
  Receipt Date: 20060308
  Transmission Date: 20060701
  Serious: Yes (Hospitalization, Other)
  Sender: FDA-Public Use
  Company Number: US-AVENTIS-200612319US

PATIENT
  Sex: Male
  Weight: 88.63 kg

DRUGS (6)
  1. LANTUS [Suspect]
  2. AVALIDE [Concomitant]
     Dosage: DOSE: UNK
  3. AVALIDE [Concomitant]
     Dosage: DOSE: 1/2 TAB
  4. VITAMIN E [Concomitant]
  5. ASCORBIC ACID [Concomitant]
  6. ASPIRIN [Concomitant]

REACTIONS (12)
  - BACK DISORDER [None]
  - BACK PAIN [None]
  - BLOOD GLUCOSE DECREASED [None]
  - BLOOD GLUCOSE INCREASED [None]
  - DIZZINESS [None]
  - HYPOGLYCAEMIA [None]
  - HYPOTENSION [None]
  - MUSCULOSKELETAL STIFFNESS [None]
  - MYALGIA [None]
  - SYNCOPE [None]
  - VEIN DISORDER [None]
  - WEIGHT INCREASED [None]
